FAERS Safety Report 5008118-X (Version None)
Quarter: 2006Q2

REPORT INFORMATION
  Report Type: 
  Country: None (occurrence: None)
  Receive Date: 20060404
  Receipt Date: 20050808
  Transmission Date: 20061013
  Serious: Yes (Other)
  Sender: FDA-Public Use
  Company Number: 2005112656

PATIENT
  Age: 65 Year
  Sex: Female

DRUGS (8)
  1. GEODON [Suspect]
     Indication: BORDERLINE PERSONALITY DISORDER
     Dosage: 80 MG (40 MG, 2 IN 1), ORAL
     Route: 048
     Dates: start: 20050228
  2. GEODON [Suspect]
     Indication: PARANOIA
     Dosage: 80 MG (40 MG, 2 IN 1), ORAL
     Route: 048
     Dates: start: 20050228
  3. EFFEXOR XR [Concomitant]
  4. KLONOPIN [Concomitant]
  5. OGEN [Concomitant]
  6. SEROQUEL [Concomitant]
  7. SYNTHROID [Concomitant]
  8. XANAX [Concomitant]

REACTIONS (1)
  - BLOOD PRESSURE INCREASED [None]
